FAERS Safety Report 5139330-7 (Version None)
Quarter: 2006Q4

REPORT INFORMATION
  Report Type: 
  Country: None (occurrence: None)
  Receive Date: 20061024
  Receipt Date: 20061013
  Transmission Date: 20070319
  Serious: Yes (Other)
  Sender: FDA-Public Use
  Company Number: GXBR2006US01839

PATIENT
  Sex: Female

DRUGS (1)
  1. NITROFURANTOIN [Suspect]
     Indication: PROPHYLAXIS
     Dosage: UNK, QHS, ORAL
     Route: 048
     Dates: start: 20060809

REACTIONS (9)
  - BALANCE DISORDER [None]
  - CHILLS [None]
  - DYSPNOEA [None]
  - FALL [None]
  - HEART RATE INCREASED [None]
  - LOSS OF CONSCIOUSNESS [None]
  - MALAISE [None]
  - PYREXIA [None]
  - RIB FRACTURE [None]
